FAERS Safety Report 25795181 (Version 1)
Quarter: 2025Q3

REPORT INFORMATION
  Report Type: Spontaneous
  Country: GB (occurrence: GB)
  Receive Date: 20250912
  Receipt Date: 20250912
  Transmission Date: 20251021
  Serious: No
  Sender: ALKEM
  Company Number: None

PATIENT
  Age: 40 Year
  Sex: Female
  Weight: 102 kg

DRUGS (1)
  1. VARENICLINE [Suspect]
     Active Substance: VARENICLINE
     Indication: Ex-tobacco user
     Route: 065
     Dates: start: 20250626

REACTIONS (2)
  - Abnormal dreams [Unknown]
  - Nausea [Unknown]
